FAERS Safety Report 15566616 (Version 2)
Quarter: 2018Q4

REPORT INFORMATION
  Report Type: Spontaneous
  Country: US (occurrence: US)
  Receive Date: 20181030
  Receipt Date: 20181205
  Transmission Date: 20190205
  Serious: No
  Sender: FDA-Public Use
  Company Number: US-TEVA-2018-US-968260

PATIENT
  Sex: Female

DRUGS (1)
  1. FLUOCINONIDE. [Suspect]
     Active Substance: FLUOCINONIDE
     Indication: PRURITUS
     Route: 061
     Dates: start: 20181003, end: 20181006

REACTIONS (3)
  - Drug ineffective [Unknown]
  - Erythema [Recovered/Resolved]
  - Pruritus [Recovered/Resolved]
